FAERS Safety Report 6128732-8 (Version None)
Quarter: 2009Q1

REPORT INFORMATION
  Report Type: 
  Country: None (occurrence: None)
  Receive Date: 20090319
  Receipt Date: 20090311
  Transmission Date: 20090719
  Serious: Yes (Hospitalization, Other)
  Sender: FDA-Public Use
  Company Number: 2009JP001457

PATIENT
  Age: 88 Year
  Sex: Female

DRUGS (11)
  1. PROGRAF [Suspect]
     Indication: RHEUMATOID ARTHRITIS
     Dosage: 0.5 MG/D, ORAL
     Route: 048
     Dates: start: 20080812, end: 20090127
  2. CEFDINIR [Suspect]
     Indication: WOUND
     Dosage: 300 MG/D, ORAL
     Route: 048
     Dates: start: 20090119, end: 20090123
  3. BREDININ(MIZORIBINE) PER ORAL NOS [Suspect]
     Dosage: 150 MG, ORAL
     Route: 048
     Dates: start: 20090113, end: 20090128
  4. FOSAMAX [Suspect]
     Dosage: ORAL
     Route: 048
     Dates: end: 20090127
  5. MEVALOTIN(PRAVASTATIN SODIUM) PER ORAL NOS [Suspect]
     Dosage: 10 MG/D, ORAL
     Route: 048
     Dates: start: 20090127
  6. BUFFERIN [Suspect]
     Dosage: 81 MG/D, ORAL
     Route: 048
     Dates: end: 20090127
  7. BASEN(VOGLIBOSE) PER ORAL NOS [Suspect]
     Dosage: 0.9 MG/D, ORAL
     Route: 048
     Dates: end: 20090126
  8. SAWADOL(ISOSORBIDE DINITRATE) [Suspect]
     Dosage: 40 MG/D, ORAL
     Route: 048
     Dates: start: 20090119, end: 20090123
  9. PREDNISOLONE [Concomitant]
  10. PREDNISOLONE [Concomitant]
  11. ENBREL [Concomitant]

REACTIONS (4)
  - DEHYDRATION [None]
  - DIARRHOEA [None]
  - RENAL FUNCTION TEST ABNORMAL [None]
  - WOUND [None]
